FAERS Safety Report 11262196 (Version 1)
Quarter: 2015Q3

REPORT INFORMATION
  Report Type: Spontaneous
  Country: US (occurrence: US)
  Receive Date: 20150710
  Receipt Date: 20150710
  Transmission Date: 20151125
  Serious: No
  Sender: FDA-Public Use
  Company Number: US-GLAXOSMITHKLINE-US2015097145

PATIENT
  Age: 61 Year
  Sex: Female

DRUGS (1)
  1. ADVAIR DISKUS [Suspect]
     Active Substance: FLUTICASONE PROPIONATE\SALMETEROL XINAFOATE
     Indication: ASTHMA
     Dosage: 1 PUFF(S), BID
     Route: 055
     Dates: start: 200707

REACTIONS (7)
  - Drug ineffective [Recovering/Resolving]
  - Eye infection [Recovering/Resolving]
  - Sneezing [Recovering/Resolving]
  - Cough [Recovering/Resolving]
  - Productive cough [Recovering/Resolving]
  - Sinusitis [Recovering/Resolving]
  - Bronchitis [Recovering/Resolving]

NARRATIVE: CASE EVENT DATE: 201502
